FAERS Safety Report 4532544-6 (Version None)
Quarter: 2004Q4

REPORT INFORMATION
  Report Type: 
  Country: None (occurrence: None)
  Receive Date: 20041206
  Receipt Date: 20040825
  Transmission Date: 20050328
  Serious: No
  Sender: FDA-Public Use
  Company Number: USA040876517

PATIENT
  Age: 63 Year
  Sex: Female

DRUGS (2)
  1. ALIMTA [Suspect]
     Indication: BREAST CANCER METASTATIC
     Dosage: 500 MG/M2 OTHER
     Dates: start: 20040101
  2. GEMZAR [Suspect]
     Indication: BREAST CANCER METASTATIC
     Dosage: 1000 MG/M2 OTHER
     Dates: start: 20040101

REACTIONS (2)
  - FLUID RETENTION [None]
  - OEDEMA [None]
